FAERS Safety Report 8604777-0 (Version None)
Quarter: 2012Q3

REPORT INFORMATION
  Report Type: 
  Country: None (occurrence: None)
  Receive Date: 20120820
  Receipt Date: 20120810
  Transmission Date: 20120928
  Serious: Yes (Other)
  Sender: FDA-Public Use
  Company Number: FR-JNJFOC-20120806112

PATIENT
  Sex: Female

DRUGS (10)
  1. NORVIR [Suspect]
     Indication: HIV INFECTION CDC CATEGORY B2
     Route: 048
     Dates: start: 20111220, end: 20120305
  2. NEXIUM [Concomitant]
     Indication: PRODUCT USED FOR UNKNOWN INDICATION
     Route: 065
  3. ABACAVIR SULFATE/LAMIVUDINE [Suspect]
     Indication: HIV INFECTION CDC CATEGORY B2
     Dosage: 600MG/300MG
     Route: 048
     Dates: start: 20111220, end: 20120305
  4. VITAMIN D [Concomitant]
     Indication: PRODUCT USED FOR UNKNOWN INDICATION
     Route: 065
     Dates: start: 20101005
  5. EZETIMIBE [Concomitant]
     Indication: PRODUCT USED FOR UNKNOWN INDICATION
     Route: 048
     Dates: start: 20101005
  6. NORVIR [Suspect]
     Route: 048
     Dates: start: 20060406, end: 20111220
  7. LEVOCARNIL [Concomitant]
     Indication: PRODUCT USED FOR UNKNOWN INDICATION
     Route: 065
     Dates: start: 20101005
  8. PREZISTA [Suspect]
     Indication: PRODUCT USED FOR UNKNOWN INDICATION
     Route: 048
     Dates: start: 20111220, end: 20120305
  9. NORVIR [Suspect]
     Route: 048
     Dates: start: 20120521
  10. NORVIR [Suspect]
     Route: 048
     Dates: start: 20030101

REACTIONS (2)
  - OEDEMA PERIPHERAL [None]
  - PARAESTHESIA [None]
